FAERS Safety Report 4502458-6 (Version None)
Quarter: 2004Q4

REPORT INFORMATION
  Report Type: 
  Country: None (occurrence: None)
  Receive Date: 20041112
  Receipt Date: 20041101
  Transmission Date: 20050328
  Serious: Yes (Life-Threatening, Hospitalization)
  Sender: FDA-Public Use
  Company Number: 2004-00464FE

PATIENT
  Age: 69 Year
  Sex: Male

DRUGS (6)
  1. PENTASA [Suspect]
     Indication: COLITIS ULCERATIVE
     Dosage: 1500 MG  ORALLY
     Route: 048
     Dates: start: 20040709, end: 20040801
  2. ALLOPURINOL [Concomitant]
  3. FAMOTIDINE [Concomitant]
  4. BETAHISTINE HYDROCHLORIDE [Concomitant]
  5. DONEPEZIL HCL [Concomitant]
  6. EPINASTINE HYDROCHLORIDE [Concomitant]

REACTIONS (4)
  - C-REACTIVE PROTEIN INCREASED [None]
  - CYANOSIS [None]
  - INTERSTITIAL LUNG DISEASE [None]
  - PYREXIA [None]
